FAERS Safety Report 8632710 (Version 2)
Quarter: 2012Q4

REPORT INFORMATION
  Report Type: 
  Country: US (occurrence: US)
  Receive Date: 20120625
  Receipt Date: 20121130
  Transmission Date: 20130627
  Serious: Yes (Life-Threatening, Hospitalization)
  Sender: FDA-Public Use
  Company Number: US-BAYER-2012-062112

PATIENT
  Age: 35 Year
  Sex: Female
  Weight: 65.76 kg

DRUGS (9)
  1. YAZ [Suspect]
     Indication: CONTRACEPTION
     Dosage: UNK
     Dates: start: 20081216, end: 20090630
  2. ANTIBIOTICS [Concomitant]
     Dosage: UNK
     Dates: start: 200707, end: 200909
  3. LEXAPRO [Concomitant]
     Indication: ANXIETY
     Dosage: 10 mg, UNK
     Route: 048
     Dates: start: 2008, end: 2009
  4. ZOLPIDEM [Concomitant]
     Dosage: 10 mg, UNK
     Route: 048
  5. HYDROCODONE W/APAP [Concomitant]
     Dosage: 10/650; UNK
     Route: 048
  6. ONDANSETRON [Concomitant]
     Dosage: 4 mg, UNK
     Route: 048
  7. CEPHALEXIN [Concomitant]
     Dosage: 500 mg, UNK
     Route: 048
  8. DOXYCYCLINE [Concomitant]
     Dosage: 100 mg, UNK
     Route: 048
  9. CIPROFLOXACIN [Concomitant]
     Dosage: UNK
     Route: 048

REACTIONS (18)
  - Deep vein thrombosis [None]
  - Injury [None]
  - Pain [None]
  - Emotional distress [None]
  - General physical health deterioration [None]
  - Anxiety [None]
  - Pain [None]
  - Pain in extremity [None]
  - Musculoskeletal stiffness [None]
  - Back pain [None]
  - Skin discolouration [None]
  - Muscle swelling [None]
  - Abdominal pain [None]
  - Diarrhoea [None]
  - Nausea [None]
  - Injection site bruising [None]
  - Arthralgia [None]
  - Panic attack [None]
